FAERS Safety Report 24151162 (Version 1)
Quarter: 2024Q3

REPORT INFORMATION
  Report Type: Spontaneous
  Country: GB (occurrence: GB)
  Receive Date: 20240730
  Receipt Date: 20240730
  Transmission Date: 20241017
  Serious: Yes (Life-Threatening, Hospitalization)
  Sender: ROCHE
  Company Number: None

PATIENT
  Age: 74 Year
  Sex: Female

DRUGS (16)
  1. MYCOPHENOLATE MOFETIL [Suspect]
     Active Substance: MYCOPHENOLATE MOFETIL
     Indication: Anti-neutrophil cytoplasmic antibody positive vasculitis
     Route: 065
  2. CHOLECALCIFEROL [Concomitant]
     Active Substance: CHOLECALCIFEROL
  3. ALLOPURINOL [Concomitant]
     Active Substance: ALLOPURINOL
  4. LORATADINE [Concomitant]
     Active Substance: LORATADINE
  5. ACETAMINOPHEN [Concomitant]
     Active Substance: ACETAMINOPHEN
     Dosage: UP TO FOUR TIMES DAILY
     Dates: end: 20240605
  6. OMEPRAZOLE [Concomitant]
     Active Substance: OMEPRAZOLE
  7. SODIUM CHLORIDE [Concomitant]
     Active Substance: SODIUM CHLORIDE
     Dosage: UP TO FOUR TIMES DAILY
  8. MINERAL OIL\PARAFFIN [Concomitant]
     Active Substance: MINERAL OIL\PARAFFIN
  9. CARBOCYSTEINE [Concomitant]
     Active Substance: CARBOCYSTEINE
  10. SERTRALINE [Concomitant]
     Active Substance: SERTRALINE HYDROCHLORIDE
  11. COCODAMOL [Concomitant]
     Active Substance: ACETAMINOPHEN\CODEINE PHOSPHATE
     Dosage: 30 MG / 500 MG TABLETS 1-2 QDS PRN
  12. ALFACALCIDOL [Concomitant]
     Active Substance: ALFACALCIDOL
  13. Hylo Night [Concomitant]
     Dosage: AT NIGHT
  14. SOLIFENACIN [Concomitant]
     Active Substance: SOLIFENACIN
  15. AZITHROMYCIN [Concomitant]
     Active Substance: AZITHROMYCIN
     Dosage: MON, WED, FRI
  16. BISOPROLOL [Concomitant]
     Active Substance: BISOPROLOL\BISOPROLOL FUMARATE

REACTIONS (2)
  - Pulmonary embolism [Recovered/Resolved with Sequelae]
  - Dyspnoea [Unknown]
